FAERS Safety Report 4266999-1 (Version None)
Quarter: 2004Q1

REPORT INFORMATION
  Report Type: 
  Country: None (occurrence: None)
  Receive Date: 20040107
  Receipt Date: 20031229
  Transmission Date: 20041129
  Serious: Yes (Disabling, Other)
  Sender: FDA-Public Use
  Company Number: US-JNJFOC-20030704248

PATIENT
  Age: 62 Year
  Sex: Female
  Weight: 90.7194 kg

DRUGS (10)
  1. TOPAMAX [Suspect]
     Indication: MIGRAINE
     Dosage: 50 MG, 2 IN 1 DAY, ORAL
     Route: 048
     Dates: start: 20030601, end: 20030703
  2. RANITIDINE [Concomitant]
  3. SECTRAL [Concomitant]
  4. NORVASC [Concomitant]
  5. PREMPRO 14/14 [Concomitant]
  6. IMITREX [Concomitant]
  7. LOPERAMIDE HCL [Concomitant]
  8. LOTEMAX (LOTEPREDNOL ETABONATE) [Concomitant]
  9. ALPHAGAN [Concomitant]
  10. TIMOLOL MALEATE [Concomitant]

REACTIONS (4)
  - BLINDNESS [None]
  - INTRAOCULAR PRESSURE INCREASED [None]
  - OPTIC NERVE DISORDER [None]
  - VISUAL ACUITY REDUCED [None]
